FAERS Safety Report 7668331-X (Version None)
Quarter: 2011Q3

REPORT INFORMATION
  Report Type: 
  Country: None (occurrence: None)
  Receive Date: 20110808
  Receipt Date: 20110728
  Transmission Date: 20111222
  Serious: Yes (Hospitalization, Other)
  Sender: FDA-Public Use
  Company Number: US-US-EMD SERONO, INC.-234466J08USA

PATIENT
  Sex: Female
  Weight: 91 kg

DRUGS (8)
  1. NEURONTIN [Concomitant]
     Indication: MULTIPLE SCLEROSIS
     Dates: start: 20070101
  2. LASIX [Concomitant]
     Indication: CARDIAC FAILURE CONGESTIVE
     Dates: start: 20030101
  3. PREDNISONE [Concomitant]
     Indication: DISEASE PROGRESSION
     Route: 048
  4. ZESTRIL [Concomitant]
     Indication: CARDIAC FAILURE CONGESTIVE
     Dates: start: 20040101, end: 20100101
  5. LOPRESSOR [Concomitant]
     Indication: HYPERTENSION
     Dates: start: 20040101, end: 20100101
  6. LEVOTHYROXINE SODIUM [Concomitant]
     Indication: HYPOTHYROIDISM
     Dates: start: 19920101
  7. REBIF [Suspect]
     Indication: MULTIPLE SCLEROSIS
     Route: 058
     Dates: start: 20070629
  8. EFFEXOR [Concomitant]
     Indication: MULTIPLE SCLEROSIS
     Dates: start: 20070101

REACTIONS (18)
  - PULMONARY HYPERTENSION [None]
  - OVARIAN CYST [None]
  - HEAD INJURY [None]
  - URINARY TRACT DISORDER [None]
  - PAIN IN EXTREMITY [None]
  - PULMONARY EMBOLISM [None]
  - BLADDER DISORDER [None]
  - BLADDER INJURY [None]
  - DYSMENORRHOEA [None]
  - HEART VALVE INCOMPETENCE [None]
  - INJECTION SITE HAEMATOMA [None]
  - CARDIAC FAILURE CONGESTIVE [None]
  - PNEUMONIA [None]
  - KIDNEY INFECTION [None]
  - LOSS OF CONSCIOUSNESS [None]
  - UTERINE HAEMORRHAGE [None]
  - SLEEP APNOEA SYNDROME [None]
  - ANAEMIA [None]
